FAERS Safety Report 7564319-8 (Version None)
Quarter: 2011Q2

REPORT INFORMATION
  Report Type: 
  Country: None (occurrence: None)
  Receive Date: 20110622
  Receipt Date: 20110609
  Transmission Date: 20111010
  Serious: Yes (Hospitalization, Other)
  Sender: FDA-Public Use
  Company Number: PHHY2011TW52347

PATIENT
  Sex: Female

DRUGS (1)
  1. EXJADE [Suspect]
     Indication: APLASTIC ANAEMIA
     Dosage: 1250 MG, DAILY
     Route: 048

REACTIONS (6)
  - ABDOMINAL INFECTION [None]
  - ASTHENIA [None]
  - VOMITING [None]
  - IMMUNODEFICIENCY [None]
  - BLOOD POTASSIUM DECREASED [None]
  - ABDOMINAL DISTENSION [None]
